FAERS Safety Report 10923868 (Version 1)
Quarter: 2015Q1

REPORT INFORMATION
  Report Type: Spontaneous
  Country: US (occurrence: None)
  Receive Date: 20150316
  Receipt Date: 20150316
  Transmission Date: 20150721
  Serious: Yes (Other)
  Sender: FDA-Public Use
  Company Number: None

PATIENT
  Age: 56 Year
  Sex: Female
  Weight: 132.9 kg

DRUGS (12)
  1. AMLODIPINE BESYLATE. [Concomitant]
     Active Substance: AMLODIPINE BESYLATE
  2. HCTZ [Concomitant]
     Active Substance: HYDROCHLOROTHIAZIDE
  3. TRAMADOL [Concomitant]
     Active Substance: TRAMADOL
  4. METOPROLOL [Concomitant]
     Active Substance: METOPROLOL
  5. BRILINTA [Suspect]
     Active Substance: TICAGRELOR
     Indication: THROMBOSIS PROPHYLAXIS
     Route: 048
     Dates: start: 20150226, end: 20150308
  6. DICLOFENAC SODIUM. [Concomitant]
     Active Substance: DICLOFENAC SODIUM
  7. GLCOSAMINE [Concomitant]
  8. MULTIVITIAM [Concomitant]
  9. ASPRIN [Concomitant]
     Active Substance: ASPIRIN
  10. METFORMIN [Concomitant]
     Active Substance: METFORMIN HYDROCHLORIDE
  11. GABAPENTINTIN [Concomitant]
  12. AMITRIPTYLINE [Concomitant]
     Active Substance: AMITRIPTYLINE

REACTIONS (2)
  - Urticaria [None]
  - Rash generalised [None]

NARRATIVE: CASE EVENT DATE: 20150308
